FAERS Safety Report 6268465-0 (Version None)
Quarter: 2009Q3

REPORT INFORMATION
  Report Type: 
  Country: None (occurrence: None)
  Receive Date: 20090715
  Receipt Date: 20090707
  Transmission Date: 20100115
  Serious: Yes (Other)
  Sender: FDA-Public Use
  Company Number: HU-PFIZER INC-2008089963

PATIENT
  Age: 53 Year

DRUGS (5)
  1. SORTIS [Suspect]
     Indication: HYPERCHOLESTEROLAEMIA
     Route: 048
     Dates: start: 20060101
  2. ASPIRIN [Concomitant]
     Route: 048
  3. FUROSEMID [Concomitant]
     Route: 048
  4. POTASSIUM CHLORIDE [Concomitant]
     Route: 048
  5. PLAVIX [Concomitant]
     Route: 048

REACTIONS (2)
  - ACUTE MYOCARDIAL INFARCTION [None]
  - HIGH DENSITY LIPOPROTEIN DECREASED [None]
